FAERS Safety Report 23834881 (Version 1)
Quarter: 2024Q2

REPORT INFORMATION
  Report Type: Spontaneous
  Country: US (occurrence: US)
  Receive Date: 20240509
  Receipt Date: 20240509
  Transmission Date: 20240716
  Serious: No
  Sender: FDA-Public Use
  Company Number: US-JNJFOC-20240459697

PATIENT
  Age: 9 Decade
  Sex: Female

DRUGS (1)
  1. WOMENS ROGAINE UNSCENTED [Suspect]
     Active Substance: MINOXIDIL
     Indication: Alopecia
     Dosage: ONE FULL CAPFUL AND A 1/3 OF ANOTHER CAPFUL.
     Route: 061
     Dates: start: 20220725

REACTIONS (4)
  - Overdose [Unknown]
  - Wrong technique in product usage process [Unknown]
  - Poor quality product administered [Unknown]
  - Product container issue [Unknown]

NARRATIVE: CASE EVENT DATE: 20220725
